FAERS Safety Report 11156855 (Version 1)
Quarter: 2015Q2

REPORT INFORMATION
  Report Type: Spontaneous
  Country: US (occurrence: US)
  Receive Date: 20150602
  Receipt Date: 20150602
  Transmission Date: 20150821
  Serious: Yes (Other)
  Sender: FDA-Public Use
  Company Number: US-PERRIGO-15US005347

PATIENT
  Age: 44 Year
  Sex: Male

DRUGS (4)
  1. TUSSIN [Suspect]
     Active Substance: GUAIFENESIN
     Indication: LOWER RESPIRATORY TRACT INFECTION
  2. VITAMIN C [Concomitant]
     Active Substance: ASCORBIC ACID
     Indication: PRODUCT USED FOR UNKNOWN INDICATION
     Route: 065
  3. TUSSIN [Suspect]
     Active Substance: GUAIFENESIN
     Indication: NASOPHARYNGITIS
     Dosage: 10 ML, Q 3-4 HOURS
     Route: 048
     Dates: start: 20150521, end: 20150521
  4. PSEUDOEPHEDRINE [Concomitant]
     Active Substance: PSEUDOEPHEDRINE
     Indication: NASAL CONGESTION
     Route: 065

REACTIONS (8)
  - Hallucination, synaesthetic [Recovered/Resolved]
  - Confusional state [Recovered/Resolved]
  - Restlessness [Unknown]
  - Expired product administered [Recovered/Resolved]
  - Inappropriate schedule of drug administration [Recovered/Resolved]
  - Hallucination, auditory [Recovered/Resolved]
  - Fatigue [Unknown]
  - Memory impairment [Unknown]

NARRATIVE: CASE EVENT DATE: 20150521
